FAERS Safety Report 7031546-8 (Version None)
Quarter: 2010Q4

REPORT INFORMATION
  Report Type: 
  Country: None (occurrence: None)
  Receive Date: 20101006
  Receipt Date: 20101006
  Transmission Date: 20110411
  Serious: Yes (Other)
  Sender: FDA-Public Use
  Company Number: None

PATIENT
  Age: 30 Year
  Sex: Female
  Weight: 54.4316 kg

DRUGS (1)
  1. ABILIFY [Suspect]
     Dosage: 5 MG DAILY PO
     Route: 048
     Dates: start: 20100917, end: 20100919

REACTIONS (2)
  - HALLUCINATION, VISUAL [None]
  - PARANOIA [None]
